FAERS Safety Report 7843971-3 (Version None)
Quarter: 2011Q4

REPORT INFORMATION
  Report Type: 
  Country: None (occurrence: None)
  Receive Date: 20111025
  Receipt Date: 20111017
  Transmission Date: 20120403
  Serious: Yes (Other)
  Sender: FDA-Public Use
  Company Number: PHHY2011FR92092

PATIENT
  Sex: Female

DRUGS (19)
  1. GLEEVEC [Suspect]
     Indication: ACUTE LYMPHOCYTIC LEUKAEMIA
     Dosage: 1 DF, BID
     Dates: start: 20110827
  2. ESCITALOPRAM [Concomitant]
     Indication: DEPRESSION
     Dosage: 1 DF, QD
     Dates: end: 20110910
  3. IMOVANE [Suspect]
     Dosage: 1 DF, QD
     Dates: start: 20110826
  4. AMBISOME [Suspect]
     Indication: ANTIFUNGAL PROPHYLAXIS
     Dosage: 0.5 DF, QD
     Dates: start: 20110903, end: 20110909
  5. VINCRISTINE [Suspect]
     Dosage: 2 MG, DAILY
     Dates: start: 20110903
  6. VANCOMYCIN HCL [Suspect]
     Dosage: 2 G, QD
     Route: 042
     Dates: start: 20110902
  7. VINCRISTINE [Suspect]
     Indication: ACUTE LYMPHOCYTIC LEUKAEMIA
     Dosage: 2 MG, DAILY
     Dates: start: 20110827
  8. EMEND [Suspect]
     Dosage: 80 MG, DAILY
  9. LUTENYL [Concomitant]
     Dosage: 1 DF, QD
  10. DEXAMETHASONE [Suspect]
     Indication: ACUTE LYMPHOCYTIC LEUKAEMIA
     Dosage: 1 DF, QD
     Dates: start: 20110827, end: 20110828
  11. VANCOMYCIN HCL [Suspect]
     Dosage: 2.5 G, QD
     Dates: start: 20110905
  12. VALACYCLOVIR HYDROCHLORIDE [Suspect]
     Dosage: 1 DF, BID
     Dates: start: 20110820
  13. GAVISCON [Concomitant]
     Dosage: 1 DF, TID
     Dates: start: 20110829, end: 20110906
  14. DEXAMETHASONE [Suspect]
     Dosage: 1 DF, QD
     Dates: start: 20110903, end: 20110904
  15. EMEND [Suspect]
     Indication: PROPHYLAXIS
     Dosage: 125 MG, UNK
     Dates: start: 20110827
  16. OMEPRAZOLE [Suspect]
     Dosage: 1 DF, QD
     Dates: start: 20110829
  17. VANCOMYCIN HCL [Suspect]
     Dosage: 1.4 G, QD
     Dates: end: 20110909
  18. PIPERACILLIN AND TAZOBACTAM [Suspect]
     Dosage: 4G/500 MG, TID
     Dates: start: 20110902
  19. ALUMINUM HYDROXIDE AND MAGNESIUM TRISILICATE [Concomitant]
     Dosage: 1 DF, TID
     Dates: start: 20110904

REACTIONS (1)
  - RENAL FAILURE ACUTE [None]
